FAERS Safety Report 12010257 (Version 2)
Quarter: 2016Q2

REPORT INFORMATION
  Report Type: Spontaneous
  Country: US (occurrence: US)
  Receive Date: 20160205
  Receipt Date: 20160408
  Transmission Date: 20160815
  Serious: No
  Sender: FDA-Public Use
  Company Number: US-PFIZER INC-2016059404

PATIENT
  Age: 69 Year
  Sex: Female
  Weight: 64 kg

DRUGS (5)
  1. GABAPENTIN. [Suspect]
     Active Substance: GABAPENTIN
     Dosage: 50 MG, 1X/DAY, 100 MG, HALF A TABLET AT BED TIME
     Route: 048
     Dates: start: 20151118
  2. ESTRACE VAGINAL [Concomitant]
     Indication: POSTMENOPAUSE
     Dosage: 0.1 NG, 1X/DAY(0.1NG/6 VAG QHS)
  3. GABAPENTIN. [Suspect]
     Active Substance: GABAPENTIN
     Indication: RESTLESS LEGS SYNDROME
     Dosage: 100 MG, 3X/DAY
     Route: 048
     Dates: start: 20151110
  4. DOCUSATE NA [Concomitant]
     Active Substance: DOCUSATE
     Indication: CONSTIPATION
     Dosage: 100 MG, AS NEEDED (BID)
  5. PREMARIN [Concomitant]
     Active Substance: ESTROGENS, CONJUGATED
     Dosage: UNK
     Dates: start: 20160112

REACTIONS (7)
  - Muscular weakness [Recovered/Resolved]
  - Product use issue [Unknown]
  - Intentional product misuse [Unknown]
  - Asthenia [Recovered/Resolved]
  - Ataxia [Unknown]
  - Coordination abnormal [Recovered/Resolved]
  - Dizziness [Unknown]
